FAERS Safety Report 23801068 (Version 1)
Quarter: 2024Q2

REPORT INFORMATION
  Report Type: Spontaneous
  Country: US (occurrence: US)
  Receive Date: 20240430
  Receipt Date: 20240430
  Transmission Date: 20240716
  Serious: Yes (Death, Hospitalization)
  Sender: FDA-Public Use
  Company Number: US-AMGEN-USASP2024084057

PATIENT
  Age: 57 Year
  Sex: Female

DRUGS (3)
  1. BEVACIZUMAB [Suspect]
     Active Substance: BEVACIZUMAB
     Indication: Ovarian clear cell carcinoma
     Dosage: 15 MILLIGRAM/KILOGRAM, Q3WK
     Route: 065
  2. PEMBROLIZUMAB [Suspect]
     Active Substance: PEMBROLIZUMAB
     Indication: Ovarian clear cell carcinoma
     Dosage: 200 MILLIGRAM, Q3WK
     Route: 065
  3. CYCLOPHOSPHAMIDE [Suspect]
     Active Substance: CYCLOPHOSPHAMIDE
     Indication: Ovarian clear cell carcinoma
     Dosage: 50 MILLIGRAM, QD
     Route: 048

REACTIONS (4)
  - Autoimmune hepatitis [Fatal]
  - Myocarditis [Unknown]
  - Therapy partial responder [Unknown]
  - Off label use [Unknown]
